FAERS Safety Report 10177717 (Version 2)
Quarter: 2015Q2

REPORT INFORMATION
  Report Type: Spontaneous
  Country: US (occurrence: US)
  Receive Date: 20140516
  Receipt Date: 20150506
  Transmission Date: 20150821
  Serious: Yes (Hospitalization)
  Sender: FDA-Public Use
  Company Number: US-SA-2014SA037933

PATIENT
  Age: 17 Year
  Sex: Female

DRUGS (1)
  1. APIDRA [Suspect]
     Active Substance: INSULIN GLULISINE
     Indication: TYPE 1 DIABETES MELLITUS
     Dosage: FREQ: BASAL 1 U/HR DOSE:1 UNIT(S)
     Route: 058
     Dates: start: 2012

REACTIONS (2)
  - Blood glucose increased [Unknown]
  - Product quality issue [Unknown]
